FAERS Safety Report 7079335-2 (Version None)
Quarter: 2010Q4

REPORT INFORMATION
  Report Type: 
  Country: None (occurrence: None)
  Receive Date: 20101102
  Receipt Date: 20100921
  Transmission Date: 20110411
  Serious: No
  Sender: FDA-Public Use
  Company Number: A0869600A

PATIENT
  Age: 67 Year
  Sex: Male

DRUGS (2)
  1. RYTHMOL SR [Suspect]
     Route: 048
  2. RYTHMOL [Suspect]

REACTIONS (6)
  - CHEST DISCOMFORT [None]
  - COUGH [None]
  - DYSPNOEA [None]
  - OEDEMA PERIPHERAL [None]
  - RESPIRATORY DISORDER [None]
  - WEIGHT INCREASED [None]
